FAERS Safety Report 7439625-8 (Version None)
Quarter: 2011Q2

REPORT INFORMATION
  Report Type: 
  Country: None (occurrence: None)
  Receive Date: 20110427
  Receipt Date: 20110423
  Transmission Date: 20111010
  Serious: Yes (Other)
  Sender: FDA-Public Use
  Company Number: US-PFIZER INC-2011088103

PATIENT
  Age: 14 Year
  Sex: Male

DRUGS (1)
  1. VIAGRA [Suspect]
     Dosage: UNK
     Route: 048
     Dates: start: 20110301

REACTIONS (5)
  - TESTICULAR DISORDER [None]
  - INCORRECT DOSE ADMINISTERED [None]
  - PENIS DISORDER [None]
  - EJACULATION DISORDER [None]
  - ERECTION INCREASED [None]
